FAERS Safety Report 5428802-3 (Version None)
Quarter: 2007Q3

REPORT INFORMATION
  Report Type: 
  Country: None (occurrence: None)
  Receive Date: 20070829
  Receipt Date: 20070625
  Transmission Date: 20080115
  Serious: No
  Sender: FDA-Public Use
  Company Number: A0659991A

PATIENT
  Age: 20 Year
  Sex: Female

DRUGS (1)
  1. ZOVIRAX [Suspect]
     Indication: GENITAL HERPES
     Dosage: 1APP UNKNOWN
     Route: 061
     Dates: start: 20070618, end: 20070619

REACTIONS (3)
  - APPLICATION SITE IRRITATION [None]
  - DRUG ADMINISTRATION ERROR [None]
  - GENITAL BURNING SENSATION [None]
